FAERS Safety Report 22389966 (Version 1)
Quarter: 2023Q2

REPORT INFORMATION
  Report Type: Spontaneous
  Country: AR (occurrence: AR)
  Receive Date: 20230531
  Receipt Date: 20230531
  Transmission Date: 20230721
  Serious: Yes (Hospitalization)
  Sender: FDA-Public Use
  Company Number: AR-SA-SAC20230526001525

PATIENT

DRUGS (1)
  1. LARONIDASE [Suspect]
     Active Substance: LARONIDASE
     Indication: Mucopolysaccharidosis I
     Dosage: 7 DF, QW
     Route: 041

REACTIONS (2)
  - Tonsillectomy [Recovering/Resolving]
  - Ear tube insertion [Unknown]

NARRATIVE: CASE EVENT DATE: 20230522
